FAERS Safety Report 14750874 (Version 1)
Quarter: 2018Q2

REPORT INFORMATION
  Report Type: Spontaneous
  Country: GB (occurrence: GB)
  Receive Date: 20180412
  Receipt Date: 20180412
  Transmission Date: 20180711
  Serious: Yes (Hospitalization, Other)
  Sender: FDA-Public Use
  Company Number: GB-AUROBINDO-AUR-APL-2018-018965

PATIENT
  Age: 84 Year
  Sex: Male

DRUGS (1)
  1. CLOPIDOGREL [Suspect]
     Active Substance: CLOPIDOGREL BISULFATE
     Indication: TRANSIENT ISCHAEMIC ATTACK
     Dosage: 75 MILLIGRAM, ONCE A DAY
     Route: 048

REACTIONS (1)
  - Duodenitis haemorrhagic [Not Recovered/Not Resolved]
